FAERS Safety Report 14897011 (Version 2)
Quarter: 2018Q4

REPORT INFORMATION
  Report Type: Spontaneous
  Country: DE (occurrence: DE)
  Receive Date: 20180515
  Receipt Date: 20181218
  Transmission Date: 20190204
  Serious: Yes (Other)
  Sender: FDA-Public Use
  Company Number: DE-ELI_LILLY_AND_COMPANY-DE201804009455

PATIENT
  Age: 53 Year
  Sex: Female

DRUGS (8)
  1. NALOXONE [Suspect]
     Active Substance: NALOXONE
     Indication: NEURALGIA
     Dosage: UNK UNK, UNKNOWN
     Route: 065
  2. DULOXETINE HYDROCHLORIDE. [Suspect]
     Active Substance: DULOXETINE HYDROCHLORIDE
     Indication: NEURALGIA
     Dosage: UNK UNK, UNKNOWN
     Route: 065
  3. LIDOCAINE. [Suspect]
     Active Substance: LIDOCAINE
     Indication: RADICULOPATHY
     Dosage: UNK, UNKNOWN
     Route: 061
  4. DULOXETINE HYDROCHLORIDE. [Suspect]
     Active Substance: DULOXETINE HYDROCHLORIDE
     Indication: RADICULOPATHY
  5. TILIDINE [Suspect]
     Active Substance: TILIDINE
     Indication: NEURALGIA
     Dosage: UNK UNK, UNKNOWN
     Route: 065
  6. TAPENTADOL [Suspect]
     Active Substance: TAPENTADOL
     Indication: RADICULOPATHY
  7. NALOXONE [Suspect]
     Active Substance: NALOXONE
     Indication: RADICULOPATHY
  8. TAPENTADOL [Suspect]
     Active Substance: TAPENTADOL
     Indication: NEURALGIA
     Dosage: 300 MG, UNKNOWN
     Route: 065

REACTIONS (2)
  - Product use in unapproved indication [Unknown]
  - Cognitive disorder [Unknown]
